FAERS Safety Report 7916089-9 (Version None)
Quarter: 2011Q4

REPORT INFORMATION
  Report Type: 
  Country: None (occurrence: None)
  Receive Date: 20111116
  Receipt Date: 20111111
  Transmission Date: 20120403
  Serious: Yes (Death, Hospitalization)
  Sender: FDA-Public Use
  Company Number: CO-ROCHE-1012009

PATIENT
  Sex: Female

DRUGS (1)
  1. MABTHERA [Suspect]
     Indication: RHEUMATOID ARTHRITIS
     Dosage: ON 14 OCT 2010 LAST INFUSION RECEIVED
     Route: 042
     Dates: start: 20090724, end: 20101014

REACTIONS (3)
  - CARDIOPULMONARY FAILURE [None]
  - DYSPNOEA [None]
  - DEATH [None]
